FAERS Safety Report 13608827 (Version 2)
Quarter: 2017Q3

REPORT INFORMATION
  Report Type: Spontaneous
  Country: US (occurrence: US)
  Receive Date: 20170602
  Receipt Date: 20170907
  Transmission Date: 20171127
  Serious: Yes (Other)
  Sender: FDA-Public Use
  Company Number: US-TEVA-775230ACC

PATIENT
  Age: 58 Year
  Sex: Male

DRUGS (10)
  1. XARELTO [Suspect]
     Active Substance: RIVAROXABAN
     Indication: DIVERTICULITIS
     Dosage: 30 MILLIGRAM DAILY;
     Route: 065
     Dates: start: 20170502
  2. RITUXIMAB. [Concomitant]
     Active Substance: RITUXIMAB
     Indication: CHRONIC LYMPHOCYTIC LEUKAEMIA
     Dosage: (4 CYCLES)
     Route: 065
     Dates: start: 20140903
  3. ALLOPURINOL. [Concomitant]
     Active Substance: ALLOPURINOL
     Indication: PRODUCT USED FOR UNKNOWN INDICATION
     Dosage: 300 MILLIGRAM DAILY;
     Route: 048
     Dates: start: 20170306
  4. WARFARIN [Suspect]
     Active Substance: WARFARIN
     Dosage: 7.5 MILLIGRAM DAILY;
     Route: 065
  5. CENTRUM [Concomitant]
     Active Substance: VITAMINS
     Indication: PRODUCT USED FOR UNKNOWN INDICATION
     Dosage: 1 DOSAGE FORMS DAILY;
     Route: 048
  6. OXYCODONE [Concomitant]
     Active Substance: OXYCODONE
     Indication: PRODUCT USED FOR UNKNOWN INDICATION
     Dosage: 15 MILLIGRAM DAILY; (AS NEEDED)
     Route: 048
     Dates: start: 20161024
  7. BENDAMUSTINE HYDROCHLORIDE. [Suspect]
     Active Substance: BENDAMUSTINE HYDROCHLORIDE
     Route: 042
  8. WARFARIN [Suspect]
     Active Substance: WARFARIN
     Indication: DIVERTICULITIS
     Route: 065
     Dates: end: 20170101
  9. BENDAMUSTINE HYDROCHLORIDE. [Suspect]
     Active Substance: BENDAMUSTINE HYDROCHLORIDE
     Indication: CHRONIC LYMPHOCYTIC LEUKAEMIA
     Route: 042
     Dates: start: 20140903
  10. IBRUTINIB [Concomitant]
     Active Substance: IBRUTINIB
     Indication: PRODUCT USED FOR UNKNOWN INDICATION
     Dosage: 420 MILLIGRAM DAILY;
     Route: 048
     Dates: start: 20170315

REACTIONS (6)
  - Contusion [Unknown]
  - Rash [Recovered/Resolved]
  - Deep vein thrombosis [Unknown]
  - Blood urine present [Recovered/Resolved]
  - Petechiae [Unknown]
  - Haematuria [Unknown]

NARRATIVE: CASE EVENT DATE: 20170518
